FAERS Safety Report 8793416 (Version 1)
Quarter: 2012Q4

REPORT INFORMATION
  Report Type: 
  Country: MX (occurrence: MX)
  Receive Date: 20120918
  Receipt Date: 20120918
  Transmission Date: 20130627
  Serious: Yes (Death, Hospitalization, Other)
  Sender: FDA-Public Use
  Company Number: PHHY2012MX080800

PATIENT
  Sex: Male

DRUGS (2)
  1. ONBREZ [Suspect]
     Indication: CHRONIC OBSTRUCTIVE PULMONARY DISEASE
     Dosage: 300 ug, QD
  2. CHEMOTHERAPEUTICS NOS [Concomitant]
     Dates: start: 201203, end: 201204

REACTIONS (3)
  - Death [Fatal]
  - Pneumonia [Unknown]
  - Hypotension [Unknown]
